FAERS Safety Report 10531369 (Version 3)
Quarter: 2014Q4

REPORT INFORMATION
  Report Type: Report from Study
  Country: US (occurrence: US)
  Receive Date: 20141021
  Receipt Date: 20141209
  Transmission Date: 20150529
  Serious: Yes (Other)
  Sender: FDA-Public Use
  Company Number: US-ABBVIE-14P-163-1297179-00

PATIENT
  Sex: Female
  Weight: 69.46 kg

DRUGS (1)
  1. HUMIRA [Suspect]
     Active Substance: ADALIMUMAB
     Indication: CROHN^S DISEASE
     Route: 058
     Dates: start: 201405

REACTIONS (4)
  - Foot deformity [Unknown]
  - Pain in extremity [Unknown]
  - Arthritis [Recovering/Resolving]
  - Peripheral vascular disorder [Unknown]
